FAERS Safety Report 7635708-8 (Version None)
Quarter: 2011Q3

REPORT INFORMATION
  Report Type: 
  Country: None (occurrence: None)
  Receive Date: 20110719
  Receipt Date: 20110714
  Transmission Date: 20111222
  Serious: Yes (Death, Hospitalization)
  Sender: FDA-Public Use
  Company Number: 2011SP018098

PATIENT
  Age: 73 Year
  Sex: Male
  Weight: 80 kg

DRUGS (25)
  1. ASPIRIN [Concomitant]
  2. OMEPRAZOLE [Concomitant]
  3. LIPITOR [Concomitant]
  4. TEMODAR [Concomitant]
  5. SENNA [Concomitant]
  6. WELLBUTRIN [Concomitant]
  7. CANDESARTAN CILEXETIL [Concomitant]
  8. DIGOXIN [Concomitant]
  9. METFORMIN HCL [Concomitant]
  10. COREG [Concomitant]
  11. FLAGYL [Concomitant]
  12. CARVEDILOL [Concomitant]
  13. BENICAR HCT [Concomitant]
  14. COMPAZINE [Concomitant]
  15. NITROGLYCERIN [Concomitant]
  16. RADIATION THERAPY [Suspect]
     Indication: OLIGODENDROGLIOMA
     Dates: start: 20110309
  17. ZOFRAN [Concomitant]
  18. HUMULIN R [Concomitant]
  19. TEMODAR [Suspect]
     Indication: OLIGODENDROGLIOMA
     Dates: start: 20110112
  20. TEMODAR [Suspect]
     Indication: OLIGODENDROGLIOMA
     Dates: start: 20110309, end: 20110313
  21. CATAPRES [Concomitant]
  22. AMARYL [Concomitant]
  23. TRENTAL [Concomitant]
  24. LANTUS [Concomitant]
  25. VITAMIN E [Concomitant]

REACTIONS (13)
  - LARGE INTESTINAL HAEMORRHAGE [None]
  - CHOLECYSTITIS [None]
  - ACUTE MYOCARDIAL INFARCTION [None]
  - NAUSEA [None]
  - MYOCARDIAL INFARCTION [None]
  - CHOLANGITIS [None]
  - OLIGODENDROGLIOMA [None]
  - DECREASED APPETITE [None]
  - CHOLELITHIASIS [None]
  - ATRIAL FIBRILLATION [None]
  - AGITATION [None]
  - ABDOMINAL PAIN [None]
  - VOMITING [None]
